FAERS Safety Report 6116553-1 (Version None)
Quarter: 2009Q1

REPORT INFORMATION
  Report Type: 
  Country: None (occurrence: None)
  Receive Date: 20090314
  Receipt Date: 20081226
  Transmission Date: 20090719
  Serious: Yes (Hospitalization)
  Sender: FDA-Public Use
  Company Number: US-ABBOTT-08P-163-0493639-00

PATIENT
  Sex: Male
  Weight: 117.13 kg

DRUGS (4)
  1. HUMIRA [Suspect]
     Indication: RHEUMATOID ARTHRITIS
     Route: 058
     Dates: start: 20061201
  2. HUMIRA [Suspect]
     Route: 058
     Dates: start: 20050501, end: 20061201
  3. LEVEMIR [Concomitant]
     Indication: DIABETES MELLITUS
     Dosage: 28 UNIT SLIDING SCALE 2-3 TIMES A WEEK
  4. JANUVIA [Concomitant]
     Indication: DIABETES MELLITUS
     Route: 048

REACTIONS (2)
  - PNEUMONIA [None]
  - SCIATICA [None]
